FAERS Safety Report 20854717 (Version 2)
Quarter: 2022Q2

REPORT INFORMATION
  Report Type: Report from Study
  Country: US (occurrence: US)
  Receive Date: 20220520
  Receipt Date: 20220618
  Transmission Date: 20220721
  Serious: Yes (Hospitalization, Other)
  Sender: FDA-Public Use
  Company Number: US-TAKEDA-2021TUS078507

PATIENT
  Age: 63 Year
  Sex: Male

DRUGS (24)
  1. TEDUGLUTIDE [Suspect]
     Active Substance: TEDUGLUTIDE
     Indication: Short-bowel syndrome
     Dosage: 4.4 MILLIGRAM, QD
     Route: 058
     Dates: start: 20201215
  2. TEDUGLUTIDE [Suspect]
     Active Substance: TEDUGLUTIDE
     Indication: Short-bowel syndrome
     Dosage: 4.4 MILLIGRAM, QD
     Route: 058
     Dates: start: 20201215
  3. TEDUGLUTIDE [Suspect]
     Active Substance: TEDUGLUTIDE
     Indication: Short-bowel syndrome
     Dosage: 4.4 MILLIGRAM, QD
     Route: 058
     Dates: start: 20201215
  4. TEDUGLUTIDE [Suspect]
     Active Substance: TEDUGLUTIDE
     Indication: Short-bowel syndrome
     Dosage: 4.4 MILLIGRAM, QD
     Route: 058
     Dates: start: 20201215
  5. TEDUGLUTIDE [Suspect]
     Active Substance: TEDUGLUTIDE
     Indication: Rheumatoid arthritis
     Dosage: 1.95 MILLIGRAM, QD
     Route: 058
     Dates: start: 202110
  6. TEDUGLUTIDE [Suspect]
     Active Substance: TEDUGLUTIDE
     Indication: Rheumatoid arthritis
     Dosage: 1.95 MILLIGRAM, QD
     Route: 058
     Dates: start: 202110
  7. TEDUGLUTIDE [Suspect]
     Active Substance: TEDUGLUTIDE
     Indication: Rheumatoid arthritis
     Dosage: 1.95 MILLIGRAM, QD
     Route: 058
     Dates: start: 202110
  8. TEDUGLUTIDE [Suspect]
     Active Substance: TEDUGLUTIDE
     Indication: Rheumatoid arthritis
     Dosage: 1.95 MILLIGRAM, QD
     Route: 058
     Dates: start: 202110
  9. TEDUGLUTIDE [Suspect]
     Active Substance: TEDUGLUTIDE
     Indication: Malabsorption
     Dosage: 4.4 MILLIGRAM, QD
     Route: 058
     Dates: start: 20211104
  10. TEDUGLUTIDE [Suspect]
     Active Substance: TEDUGLUTIDE
     Indication: Malabsorption
     Dosage: 4.4 MILLIGRAM, QD
     Route: 058
     Dates: start: 20211104
  11. TEDUGLUTIDE [Suspect]
     Active Substance: TEDUGLUTIDE
     Indication: Malabsorption
     Dosage: 4.4 MILLIGRAM, QD
     Route: 058
     Dates: start: 20211104
  12. TEDUGLUTIDE [Suspect]
     Active Substance: TEDUGLUTIDE
     Indication: Malabsorption
     Dosage: 4.4 MILLIGRAM, QD
     Route: 058
     Dates: start: 20211104
  13. TEDUGLUTIDE [Suspect]
     Active Substance: TEDUGLUTIDE
     Dosage: 1.95 MILLIGRAM, QD
     Route: 058
     Dates: start: 20211113
  14. TEDUGLUTIDE [Suspect]
     Active Substance: TEDUGLUTIDE
     Dosage: 1.95 MILLIGRAM, QD
     Route: 058
     Dates: start: 20211113
  15. TEDUGLUTIDE [Suspect]
     Active Substance: TEDUGLUTIDE
     Dosage: 1.95 MILLIGRAM, QD
     Route: 058
     Dates: start: 20211113
  16. TEDUGLUTIDE [Suspect]
     Active Substance: TEDUGLUTIDE
     Dosage: 1.95 MILLIGRAM, QD
     Route: 058
     Dates: start: 20211113
  17. TEDUGLUTIDE [Suspect]
     Active Substance: TEDUGLUTIDE
     Dosage: 1.95 MILLIGRAM, QD
     Route: 058
     Dates: start: 202111, end: 20220502
  18. TEDUGLUTIDE [Suspect]
     Active Substance: TEDUGLUTIDE
     Dosage: 1.95 MILLIGRAM, QD
     Route: 058
     Dates: start: 202111, end: 20220502
  19. TEDUGLUTIDE [Suspect]
     Active Substance: TEDUGLUTIDE
     Dosage: 1.95 MILLIGRAM, QD
     Route: 058
     Dates: start: 202111, end: 20220502
  20. TEDUGLUTIDE [Suspect]
     Active Substance: TEDUGLUTIDE
     Dosage: 1.95 MILLIGRAM, QD
     Route: 058
     Dates: start: 202111, end: 20220502
  21. TEDUGLUTIDE [Suspect]
     Active Substance: TEDUGLUTIDE
     Dosage: 1.95 MILLIGRAM, QD
     Route: 058
     Dates: start: 20211215
  22. TEDUGLUTIDE [Suspect]
     Active Substance: TEDUGLUTIDE
     Dosage: 1.95 MILLIGRAM, QD
     Route: 058
     Dates: start: 20211215
  23. TEDUGLUTIDE [Suspect]
     Active Substance: TEDUGLUTIDE
     Dosage: 1.95 MILLIGRAM, QD
     Route: 058
     Dates: start: 20211215
  24. TEDUGLUTIDE [Suspect]
     Active Substance: TEDUGLUTIDE
     Dosage: 1.95 MILLIGRAM, QD
     Route: 058
     Dates: start: 20211215

REACTIONS (10)
  - Obstruction [Unknown]
  - Cataract [Unknown]
  - Dysphonia [Unknown]
  - Peripheral swelling [Recovering/Resolving]
  - Injection site bruising [Recovering/Resolving]
  - Vitamin D decreased [Unknown]
  - Blood iron decreased [Unknown]
  - Vitamin B12 decreased [Unknown]
  - Dyspnoea [Unknown]
  - Off label use [Unknown]

NARRATIVE: CASE EVENT DATE: 20220502
